FAERS Safety Report 6138215-7 (Version None)
Quarter: 2009Q1

REPORT INFORMATION
  Report Type: 
  Country: None (occurrence: None)
  Receive Date: 20090331
  Receipt Date: 20090324
  Transmission Date: 20090719
  Serious: Yes (Disabling, Other)
  Sender: FDA-Public Use
  Company Number: A0774847A

PATIENT
  Sex: Female

DRUGS (3)
  1. LAMICTAL [Suspect]
     Indication: DEPRESSION
     Dosage: 150MG PER DAY
     Route: 048
     Dates: start: 20081202, end: 20090301
  2. SERZONE [Concomitant]
  3. WELLBUTRIN SR [Concomitant]

REACTIONS (1)
  - OROPHARYNGEAL PAIN [None]
